FAERS Safety Report 20853507 (Version 3)
Quarter: 2022Q3

REPORT INFORMATION
  Report Type: Spontaneous
  Country: US (occurrence: US)
  Receive Date: 20220520
  Receipt Date: 20220907
  Transmission Date: 20221026
  Serious: Yes (Hospitalization, Other)
  Sender: FDA-Public Use
  Company Number: US-AURINIA PHARMACEUTICALS INC.-AUR-001337

PATIENT
  Age: 76 Year
  Sex: Female

DRUGS (3)
  1. LUPKYNIS [Suspect]
     Active Substance: VOCLOSPORIN
     Indication: Lupus nephritis
     Dosage: 23.7 MILLIGRAM, BID
     Route: 048
     Dates: start: 20220322, end: 202206
  2. LUPKYNIS [Suspect]
     Active Substance: VOCLOSPORIN
     Dosage: 15.8 MILLIGRAM, BID
     Route: 048
     Dates: start: 202206
  3. LUPKYNIS [Suspect]
     Active Substance: VOCLOSPORIN
     Dosage: 15.8 MILLIGRAM, BID
     Route: 048
     Dates: start: 20220322

REACTIONS (11)
  - Arrhythmia [Not Recovered/Not Resolved]
  - Blood sodium decreased [Recovered/Resolved]
  - Blood potassium abnormal [Unknown]
  - Tachycardia [Recovered/Resolved]
  - Heart rate increased [Not Recovered/Not Resolved]
  - Anxiety [Recovered/Resolved]
  - Chills [Not Recovered/Not Resolved]
  - Hypertension [Recovered/Resolved]
  - Headache [Not Recovered/Not Resolved]
  - Hypertrichosis [Not Recovered/Not Resolved]
  - Anaemia [Unknown]

NARRATIVE: CASE EVENT DATE: 20220412
